FAERS Safety Report 9414660 (Version 1)
Quarter: 2013Q3

REPORT INFORMATION
  Report Type: Spontaneous
  Country: BR (occurrence: BR)
  Receive Date: 20130723
  Receipt Date: 20130723
  Transmission Date: 20140515
  Serious: Yes (Other)
  Sender: FDA-Public Use
  Company Number: PHHY2013BR077072

PATIENT
  Sex: Male
  Weight: 2.3 kg

DRUGS (1)
  1. EXJADE [Suspect]
     Indication: MATERNAL EXPOSURE TIMING UNSPECIFIED
     Dosage: UNK UKN, UNK
     Route: 015

REACTIONS (3)
  - Premature baby [Unknown]
  - Bronchitis [Not Recovered/Not Resolved]
  - Foetal exposure during pregnancy [Unknown]
